FAERS Safety Report 21196947 (Version 1)
Quarter: 2022Q3

REPORT INFORMATION
  Report Type: Other
  Country: TR (occurrence: None)
  Receive Date: 20220810
  Receipt Date: 20220810
  Transmission Date: 20221027
  Serious: Yes (Other)
  Sender: FDA-Public Use
  Company Number: TR-Merck Healthcare KGaA-9341337

PATIENT
  Age: 39 Year
  Sex: Male

DRUGS (2)
  1. INTERFERON BETA-1A [Suspect]
     Active Substance: INTERFERON BETA-1A
     Indication: Antiphospholipid syndrome
     Route: 058
     Dates: start: 2014
  2. METHYLPREDNISOLONE [Concomitant]
     Active Substance: METHYLPREDNISOLONE
     Indication: Multiple sclerosis
     Dosage: HIGH DOSE
     Route: 042

REACTIONS (2)
  - Antiphospholipid syndrome [Unknown]
  - Product prescribing error [Unknown]
